FAERS Safety Report 8005011-5 (Version None)
Quarter: 2011Q4

REPORT INFORMATION
  Report Type: 
  Country: None (occurrence: None)
  Receive Date: 20111220
  Receipt Date: 20111208
  Transmission Date: 20120403
  Serious: Yes (Other)
  Sender: FDA-Public Use
  Company Number: 2011SP058367

PATIENT
  Sex: Male

DRUGS (1)
  1. SYCREST (ASENAPINE /05706901/) [Suspect]
     Indication: PRODUCT USED FOR UNKNOWN INDICATION

REACTIONS (3)
  - PANCREATITIS ACUTE [None]
  - BLOOD ALKALINE PHOSPHATASE INCREASED [None]
  - EJACULATION DISORDER [None]
